FAERS Safety Report 14652408 (Version 1)
Quarter: 2018Q1

REPORT INFORMATION
  Report Type: Spontaneous
  Country: US (occurrence: US)
  Receive Date: 20180318
  Receipt Date: 20180318
  Transmission Date: 20180509
  Serious: No
  Sender: FDA-Public Use
  Company Number: US-MYLANLABS-2018M1013007

PATIENT
  Sex: Female
  Weight: 68 kg

DRUGS (1)
  1. LITHIUM. [Suspect]
     Active Substance: LITHIUM
     Indication: MOOD ALTERED
     Dosage: 300 MG, Q4D
     Route: 048

REACTIONS (3)
  - Blood urea increased [Not Recovered/Not Resolved]
  - Blood creatine increased [Not Recovered/Not Resolved]
  - Feeling abnormal [Recovered/Resolved]
